FAERS Safety Report 25445144 (Version 1)
Quarter: 2025Q2

REPORT INFORMATION
  Report Type: Spontaneous
  Country: US (occurrence: None)
  Receive Date: 20250616
  Receipt Date: 20250616
  Transmission Date: 20250717
  Serious: Yes (Other)
  Sender: FDA-CTU
  Company Number: None

PATIENT
  Age: 63 Year
  Sex: Female

DRUGS (1)
  1. DIMETHYL FUMARATE [Suspect]
     Active Substance: DIMETHYL FUMARATE
     Indication: Drug therapy
     Dosage: FREQUENCY : TWICE A DAY;?

REACTIONS (10)
  - Fall [None]
  - Flushing [None]
  - Increased tendency to bruise [None]
  - Therapy interrupted [None]
  - Product dose omission in error [None]
  - Wrist fracture [None]
  - Limb injury [None]
  - Buttock injury [None]
  - Contusion [None]
  - Accident [None]
